FAERS Safety Report 7834684-2 (Version None)
Quarter: 2011Q4

REPORT INFORMATION
  Report Type: 
  Country: None (occurrence: None)
  Receive Date: 20111024
  Receipt Date: 20111016
  Transmission Date: 20120403
  Serious: Yes (Other)
  Sender: FDA-Public Use
  Company Number: DK-ABBOTT-11P-044-0711013-00

PATIENT
  Sex: Female
  Weight: 85 kg

DRUGS (2)
  1. AKINETON [Suspect]
     Indication: SCHIZOPHRENIA
     Route: 048
     Dates: start: 20030613
  2. CLOZAPINE [Suspect]
     Indication: SCHIZOPHRENIA
     Dates: start: 19760101

REACTIONS (1)
  - TOOTH LOSS [None]
